FAERS Safety Report 17489291 (Version 2)
Quarter: 2020Q3

REPORT INFORMATION
  Report Type: Spontaneous
  Country: US (occurrence: US)
  Receive Date: 20200303
  Receipt Date: 20200922
  Transmission Date: 20201102
  Serious: Yes (Other)
  Sender: FDA-Public Use
  Company Number: US-ASTRAZENECA-2020SE30286

PATIENT
  Age: 755 Month
  Sex: Male

DRUGS (35)
  1. ZYLOPRIM [Concomitant]
     Active Substance: ALLOPURINOL
  2. ONGLYZA [Suspect]
     Active Substance: SAXAGLIPTIN HYDROCHLORIDE
     Indication: TYPE 2 DIABETES MELLITUS
     Route: 048
     Dates: start: 201703
  3. NIFEDIPINE. [Concomitant]
     Active Substance: NIFEDIPINE
  4. LUMIGAN [Concomitant]
     Active Substance: BIMATOPROST
  5. COLCHICINE. [Concomitant]
     Active Substance: COLCHICINE
  6. CIPRO [Concomitant]
     Active Substance: CIPROFLOXACIN HYDROCHLORIDE
  7. NEPHROCAPS [Concomitant]
     Active Substance: ASCORBIC ACID\BIOTIN\CYANOCOBALAMIN\FOLIC ACID\NIACIN\PANTOTHENIC ACID\PYRIDOXINE\RIBOFLAVIN\THIAMINE
  8. LIDODERM [Concomitant]
     Active Substance: LIDOCAINE
  9. PROMETHAZINE W/CODEINE [Concomitant]
     Active Substance: CODEINE\PROMETHAZINE
  10. PROCRIT [Concomitant]
     Active Substance: ERYTHROPOIETIN
  11. ONGLYZA [Suspect]
     Active Substance: SAXAGLIPTIN HYDROCHLORIDE
     Indication: TYPE 2 DIABETES MELLITUS
     Route: 048
     Dates: start: 20150322, end: 20200501
  12. FUROSEMIDE. [Concomitant]
     Active Substance: FUROSEMIDE
  13. RENVELA [Concomitant]
     Active Substance: SEVELAMER CARBONATE
  14. APRESOLINE HYDROCHLORIDE [Concomitant]
     Active Substance: HYDRALAZINE HYDROCHLORIDE
  15. MIRALAX [Concomitant]
     Active Substance: POLYETHYLENE GLYCOL 3350
  16. TERAZOSIN [Concomitant]
     Active Substance: TERAZOSIN HYDROCHLORIDE
  17. ASPIRIN. [Concomitant]
     Active Substance: ASPIRIN
  18. TYLENOL [Concomitant]
     Active Substance: ACETAMINOPHEN
  19. ULORIC [Concomitant]
     Active Substance: FEBUXOSTAT
  20. KENALOG [Concomitant]
     Active Substance: TRIAMCINOLONE ACETONIDE
  21. ISOSORBIDE MONONITRATE. [Concomitant]
     Active Substance: ISOSORBIDE MONONITRATE
  22. DIGOXIN. [Concomitant]
     Active Substance: DIGOXIN
  23. VITAMIN D3 [Concomitant]
     Active Substance: CHOLECALCIFEROL
  24. XALATAN [Concomitant]
     Active Substance: LATANOPROST
  25. DYMISTA [Concomitant]
     Active Substance: AZELASTINE HYDROCHLORIDE\FLUTICASONE PROPIONATE
  26. CORTISPORIN [Concomitant]
     Active Substance: BACITRACIN ZINC\HYDROCORTISONE\NEOMYCIN SULFATE\POLYMYXIN B SULFATE
  27. PROCTOFOAM [Concomitant]
     Active Substance: PRAMOXINE HYDROCHLORIDE
  28. ONGLYZA [Suspect]
     Active Substance: SAXAGLIPTIN HYDROCHLORIDE
     Indication: TYPE 2 DIABETES MELLITUS
     Route: 048
     Dates: start: 20180426
  29. HYDRALAZINE [Concomitant]
     Active Substance: HYDRALAZINE HYDROCHLORIDE
  30. PRAMOXINE [Concomitant]
     Active Substance: PRAMOXINE
  31. FLUTICASONE. [Concomitant]
     Active Substance: FLUTICASONE
  32. TIZANIDINE. [Concomitant]
     Active Substance: TIZANIDINE
  33. ISORDIL [Concomitant]
     Active Substance: ISOSORBIDE DINITRATE
  34. COREG [Concomitant]
     Active Substance: CARVEDILOL
  35. BACTRIM [Concomitant]
     Active Substance: SULFAMETHOXAZOLE\TRIMETHOPRIM

REACTIONS (3)
  - Chronic left ventricular failure [Unknown]
  - Cardiac failure [Unknown]
  - Cardiac failure congestive [Unknown]

NARRATIVE: CASE EVENT DATE: 201609
